FAERS Safety Report 20592741 (Version 1)
Quarter: 2022Q1

REPORT INFORMATION
  Report Type: Spontaneous
  Country: US (occurrence: None)
  Receive Date: 20220314
  Receipt Date: 20220314
  Transmission Date: 20220423
  Serious: No
  Sender: FDA-Public Use
  Company Number: US-ROCHE-2937690

PATIENT
  Age: 63 Year
  Sex: Female

DRUGS (13)
  1. XOLAIR [Suspect]
     Active Substance: OMALIZUMAB
     Indication: Asthma
     Route: 058
  2. DUPIXENT [Concomitant]
     Active Substance: DUPILUMAB
  3. XANAX [Concomitant]
     Active Substance: ALPRAZOLAM
  4. PREMARIN [Concomitant]
     Active Substance: ESTROGENS, CONJUGATED
  5. ESTRADIOL [Concomitant]
     Active Substance: ESTRADIOL
  6. ATIVAN [Concomitant]
     Active Substance: LORAZEPAM
  7. ACLIDINIUM BROMIDE [Concomitant]
     Active Substance: ACLIDINIUM BROMIDE
  8. CLARINEX [Concomitant]
     Active Substance: DESLORATADINE
  9. SYMBICORT [Concomitant]
     Active Substance: BUDESONIDE\FORMOTEROL FUMARATE DIHYDRATE
  10. BUDESONIDE [Concomitant]
     Active Substance: BUDESONIDE
  11. ALLEGRA [Concomitant]
     Active Substance: FEXOFENADINE HYDROCHLORIDE
  12. CELEBREX [Concomitant]
     Active Substance: CELECOXIB
  13. VENTOLIN [Concomitant]
     Active Substance: ALBUTEROL SULFATE

REACTIONS (2)
  - Off label use [Unknown]
  - Dyspnoea [Unknown]
